FAERS Safety Report 10273100 (Version 1)
Quarter: 2014Q3

REPORT INFORMATION
  Report Type: Spontaneous
  Country: SE (occurrence: SE)
  Receive Date: 20140702
  Receipt Date: 20140702
  Transmission Date: 20150326
  Serious: Yes (Other)
  Sender: FDA-Public Use
  Company Number: SE-ASTRAZENECA-2014SE47623

PATIENT
  Age: 89 Year
  Sex: Female

DRUGS (10)
  1. NIFEREX [Concomitant]
     Active Substance: IRON\POLYSACCHARIDES
  2. SOBRIL [Concomitant]
     Active Substance: OXAZEPAM
  3. SELOKENZOC [Concomitant]
     Active Substance: METOPROLOL SUCCINATE
  4. BEHEPAN [Concomitant]
     Active Substance: HYDROXOCOBALAMIN
  5. MORPHINE [Concomitant]
     Active Substance: MORPHINE
     Route: 042
  6. ESOMEPRAZOLE [Concomitant]
     Active Substance: ESOMEPRAZOLE
  7. IMOVANE [Concomitant]
     Active Substance: ZOPICLONE
  8. NAROP [Suspect]
     Active Substance: ROPIVACAINE HYDROCHLORIDE
     Indication: FEMUR FRACTURE
     Dosage: 5 MG/ML, 30 MILLILITRE UNKNOWN
     Route: 065
     Dates: start: 20140529, end: 20140529
  9. MALVITONA [Concomitant]
  10. EPOETIN ZETA [Concomitant]
     Active Substance: ERYTHROPOIETIN

REACTIONS (1)
  - Neurotoxicity [Recovered/Resolved]

NARRATIVE: CASE EVENT DATE: 20140529
